FAERS Safety Report 6087804-7 (Version None)
Quarter: 2009Q1

REPORT INFORMATION
  Report Type: 
  Country: None (occurrence: None)
  Receive Date: 20090223
  Receipt Date: 20090213
  Transmission Date: 20090719
  Serious: Yes (Hospitalization)
  Sender: FDA-Public Use
  Company Number: JP-ELI_LILLY_AND_COMPANY-JP200811002431

PATIENT
  Sex: Female
  Weight: 49.4 kg

DRUGS (6)
  1. RALOXIFENE HYDROCHLORIDE [Suspect]
     Indication: OSTEOPOROSIS POSTMENOPAUSAL
     Dosage: 60 MG, DAILY (1/D)
     Route: 048
     Dates: start: 20050528, end: 20080930
  2. ATELEC [Concomitant]
     Indication: HYPERTENSION
     Dosage: 10 MG, DAILY (1/D)
     Route: 048
     Dates: start: 20050430
  3. NU-LOTAN [Concomitant]
     Indication: HYPERTENSION
     Dosage: 25 MG, DAILY (1/D)
     Route: 048
  4. EUGLUCON [Concomitant]
     Indication: DIABETES MELLITUS
     Dosage: 1.25 MG, DAILY (1/D)
     Route: 048
  5. SIGMART [Concomitant]
     Indication: ANGINA PECTORIS
     Dosage: 10 MG, DAILY (1/D)
     Route: 048
  6. ASPIRIN [Concomitant]
     Indication: ANGINA PECTORIS
     Dosage: 100 MG, DAILY (1/D)
     Route: 048
     Dates: start: 20060625

REACTIONS (1)
  - HERPES ZOSTER [None]
